FAERS Safety Report 22041142 (Version 2)
Quarter: 2023Q1

REPORT INFORMATION
  Report Type: Report from Study
  Country: US (occurrence: US)
  Receive Date: 20230227
  Receipt Date: 20230328
  Transmission Date: 20230418
  Serious: Yes (Other)
  Sender: FDA-Public Use
  Company Number: US-002147023-NVSC2023US040142

PATIENT
  Sex: Male

DRUGS (1)
  1. ENTRESTO [Suspect]
     Active Substance: SACUBITRIL\VALSARTAN
     Indication: Product used for unknown indication
     Dosage: UNK
     Route: 048
     Dates: start: 202301

REACTIONS (9)
  - Pneumonia [Unknown]
  - Throat clearing [Unknown]
  - Dysphonia [Unknown]
  - Ejection fraction decreased [Unknown]
  - Cough [Unknown]
  - Gait disturbance [Unknown]
  - Chills [Unknown]
  - Pain [Unknown]
  - Hypotension [Unknown]
